FAERS Safety Report 24417108 (Version 1)
Quarter: 2024Q4

REPORT INFORMATION
  Report Type: Spontaneous
  Country: US (occurrence: US)
  Receive Date: 20241009
  Receipt Date: 20241009
  Transmission Date: 20250114
  Serious: No
  Sender: CB FLEET
  Company Number: US-PRESTIGE-202406-US-001940

PATIENT
  Sex: Female

DRUGS (2)
  1. MONISTAT 7 7-DAY DISPOSABLE APPLICATORS [Suspect]
     Active Substance: MICONAZOLE NITRATE
     Indication: Fungal infection
     Dosage: I^M USING THE M7 AND MISSED THE 3RD DOSE
     Route: 067
  2. MONISTAT 7 7-DAY DISPOSABLE APPLICATORS [Suspect]
     Active Substance: MICONAZOLE NITRATE
     Route: 067

REACTIONS (2)
  - Product dose omission issue [Unknown]
  - Hyperhidrosis [Recovering/Resolving]
